FAERS Safety Report 25102812 (Version 1)
Quarter: 2025Q1

REPORT INFORMATION
  Report Type: Spontaneous
  Country: US (occurrence: US)
  Receive Date: 20250321
  Receipt Date: 20250321
  Transmission Date: 20250409
  Serious: Yes (Hospitalization, Other)
  Sender: GRAVITI PHARMACEUTICALS PRIVATE LIMITED
  Company Number: US-GRAVITIPHARMA-GRA-2503-US-LIT-0130

PATIENT
  Age: 22 Year

DRUGS (12)
  1. BUPROPION [Suspect]
     Active Substance: BUPROPION
     Indication: Major depression
     Route: 065
     Dates: start: 20211229
  2. BUPROPION [Suspect]
     Active Substance: BUPROPION
     Indication: Anxiety disorder
     Route: 065
     Dates: start: 20220301
  3. BUPROPION [Suspect]
     Active Substance: BUPROPION
     Indication: Nausea
  4. DULOXETINE [Suspect]
     Active Substance: DULOXETINE
     Indication: Major depression
     Route: 065
     Dates: start: 20211229
  5. DULOXETINE [Suspect]
     Active Substance: DULOXETINE
     Indication: Anxiety disorder
  6. DULOXETINE [Suspect]
     Active Substance: DULOXETINE
     Indication: Nausea
  7. ONDANSETRON [Suspect]
     Active Substance: ONDANSETRON
     Indication: Headache
     Route: 065
     Dates: start: 20220112
  8. GABAPENTIN [Suspect]
     Active Substance: GABAPENTIN
     Indication: Headache
     Route: 065
     Dates: start: 20220112
  9. GABAPENTIN [Suspect]
     Active Substance: GABAPENTIN
     Route: 065
  10. GABAPENTIN [Suspect]
     Active Substance: GABAPENTIN
     Route: 065
  11. AMANTADINE [Suspect]
     Active Substance: AMANTADINE
     Indication: Post-traumatic headache
     Route: 065
     Dates: start: 20220405
  12. BOTULINUM TOXIN NOS [Concomitant]
     Active Substance: BOTULINUM TOXIN NOS
     Indication: Post-traumatic headache
     Route: 065
     Dates: start: 20220308

REACTIONS (1)
  - Serotonin syndrome [Recovered/Resolved]
